FAERS Safety Report 21407938 (Version 1)
Quarter: 2022Q4

REPORT INFORMATION
  Report Type: Report from Study
  Country: IN (occurrence: IN)
  Receive Date: 20221004
  Receipt Date: 20221004
  Transmission Date: 20230112
  Serious: Yes (Other)
  Sender: FDA-Public Use
  Company Number: IN-UCBSA-2022058018

PATIENT
  Sex: Male

DRUGS (2)
  1. KEPPRA [Suspect]
     Active Substance: LEVETIRACETAM
     Indication: Seizure
     Dosage: 500 MILLIGRAM, 2X/DAY (BID)
     Route: 048
     Dates: start: 20220815
  2. KEPPRA [Suspect]
     Active Substance: LEVETIRACETAM
     Dosage: INTENTIONAL OVERDOSE/ONCE CONSUMED 3 TAB AT A TIME
     Route: 048

REACTIONS (6)
  - Seizure [Not Recovered/Not Resolved]
  - Fall [Unknown]
  - Injury [Unknown]
  - Behaviour disorder [Unknown]
  - Intentional dose omission [Unknown]
  - Intentional overdose [Unknown]

NARRATIVE: CASE EVENT DATE: 20220101
